FAERS Safety Report 22316103 (Version 1)
Quarter: 2023Q2

REPORT INFORMATION
  Report Type: Spontaneous
  Country: IT (occurrence: IT)
  Receive Date: 20230512
  Receipt Date: 20230512
  Transmission Date: 20230722
  Serious: Yes (Other)
  Sender: FDA-Public Use
  Company Number: IT-VIRTUS PHARMACEUTICALS, LLC-2023VTS00010

PATIENT
  Age: 11 Year
  Sex: Female

DRUGS (3)
  1. ALBUTEROL [Suspect]
     Active Substance: ALBUTEROL
     Indication: Asthma
     Dosage: 2.5 MG, AS NEEDED (IF NECESSARY, REPEATED DOSES WERE GIVEN EVERY 20 MIN FOR A TOTAL OF 3 DOSES, THEN
  2. FLUTICASONE [Concomitant]
     Active Substance: FLUTICASONE
     Indication: Asthma
  3. MONTELUKAST [Concomitant]
     Active Substance: MONTELUKAST SODIUM
     Indication: Asthma

REACTIONS (1)
  - Supraventricular tachycardia [Recovered/Resolved]
